FAERS Safety Report 4912033-7 (Version None)
Quarter: 2006Q1

REPORT INFORMATION
  Report Type: 
  Country: None (occurrence: None)
  Receive Date: 20060213
  Receipt Date: 20060130
  Transmission Date: 20060701
  Serious: Yes (Death)
  Sender: FDA-Public Use
  Company Number: RENA-11614

PATIENT
  Age: 57 Year
  Sex: Male
  Weight: 51 kg

DRUGS (5)
  1. RENAGEL [Suspect]
     Indication: HYPERPHOSPHATAEMIA
     Dosage: 1 G TID PO
     Route: 048
     Dates: start: 20040825, end: 20040920
  2. ADALAT [Concomitant]
  3. DIOVAN [Concomitant]
  4. METHYLDOPA [Concomitant]
  5. DEPAKENE [Concomitant]

REACTIONS (3)
  - CONDITION AGGRAVATED [None]
  - DEHYDRATION [None]
  - DIARRHOEA [None]
